FAERS Safety Report 8998217 (Version 6)
Quarter: 2013Q4

REPORT INFORMATION
  Report Type: Spontaneous
  Country: US (occurrence: US)
  Receive Date: 20130104
  Receipt Date: 20131220
  Transmission Date: 20140711
  Serious: No
  Sender: FDA-Public Use
  Company Number: US-VERTEX PHARMACEUTICALS INC.-2013-000045

PATIENT
  Age: 52 Year
  Sex: Female
  Weight: 56 kg

DRUGS (22)
  1. KALYDECO [Suspect]
     Indication: CYSTIC FIBROSIS
     Dosage: 150 MG, BID
     Route: 048
     Dates: start: 20120211
  2. KALYDECO [Suspect]
     Dosage: 150 MG, BID
     Route: 048
     Dates: start: 20121102, end: 20121220
  3. KALYDECO [Suspect]
     Dosage: 150 MG, BID
     Route: 048
     Dates: start: 20121227, end: 20121231
  4. KALYDECO [Suspect]
     Dosage: 1 AM, 0.5 PM
     Route: 048
     Dates: start: 2013, end: 2013
  5. KALYDECO [Suspect]
     Dosage: 1 DF AM, QD
     Route: 048
     Dates: start: 2013, end: 2013
  6. KALYDECO [Suspect]
     Dosage: UNK
     Dates: start: 20131031
  7. KALYDECO [Suspect]
     Dosage: 75 MG, BID
     Dates: start: 20131109
  8. LEXAPRO [Concomitant]
  9. ASACOL [Concomitant]
     Indication: LARGE INTESTINAL ULCER
  10. PANCREAZE [Concomitant]
  11. PREVACID [Concomitant]
  12. DEXILANT [Concomitant]
  13. PEPCID [Concomitant]
  14. LAMICTAL [Concomitant]
  15. AMBIEN [Concomitant]
  16. ATIVAN [Concomitant]
  17. ADVAIR [Concomitant]
  18. MAXAIR [Concomitant]
  19. NASONEX [Concomitant]
  20. ADEKS [Concomitant]
  21. CLARITIN [Concomitant]
  22. KLONOPIN [Concomitant]

REACTIONS (4)
  - Urticaria [Unknown]
  - Herpes zoster [Unknown]
  - Infective pulmonary exacerbation of cystic fibrosis [Recovered/Resolved]
  - Rash [Unknown]
